FAERS Safety Report 24122479 (Version 3)
Quarter: 2024Q4

REPORT INFORMATION
  Report Type: Report from Study
  Country: US (occurrence: US)
  Receive Date: 20240723
  Receipt Date: 20241017
  Transmission Date: 20250114
  Serious: No
  Sender: ROCHE
  Company Number: US-ROCHE-2721498

PATIENT
  Age: 57 Year
  Sex: Female

DRUGS (3)
  1. RITUXAN [Suspect]
     Active Substance: RITUXIMAB
     Indication: Relapsing multiple sclerosis
     Dosage: EVERY 4 MONTHS 20/MAY/2019, 03/JUN/2019, 03/DEC/2019, 03/JUN/2020?LAST TREATMENT 01/JUN/2020
     Route: 042
  2. RITUXAN [Suspect]
     Active Substance: RITUXIMAB
     Dosage: AND SUBSEQUENT 600MG EVERY 6 MONTHS
     Route: 042
  3. OCREVUS [Suspect]
     Active Substance: OCRELIZUMAB
     Indication: Relapsing multiple sclerosis
     Route: 042
     Dates: start: 20190520

REACTIONS (2)
  - Off label use [Unknown]
  - No adverse event [Unknown]
